FAERS Safety Report 18121512 (Version 1)
Quarter: 2020Q3

REPORT INFORMATION
  Report Type: Spontaneous
  Country: US (occurrence: US)
  Receive Date: 20200806
  Receipt Date: 20200806
  Transmission Date: 20201103
  Serious: No
  Sender: FDA-Public Use
  Company Number: US-ASSERTIO THERAPEUTICS, INC.-US-2019DEP000819

PATIENT
  Age: 29 Year
  Sex: Female

DRUGS (2)
  1. KETOROLAC [Concomitant]
     Active Substance: KETOROLAC TROMETHAMINE
     Indication: PRODUCT USED FOR UNKNOWN INDICATION
     Dosage: UNK
  2. CAMBIA [Suspect]
     Active Substance: DICLOFENAC POTASSIUM
     Indication: PAIN
     Dosage: MIX 1 PACKET IN 1?2 OZ OF WATER. DRINK AT ONSET OF PAIN. MAY REPEAT IN 2 HOURS IF NEEDED. MAX 3/DAY
     Route: 048

REACTIONS (3)
  - Product use in unapproved indication [Unknown]
  - Back pain [Not Recovered/Not Resolved]
  - Back injury [Unknown]

NARRATIVE: CASE EVENT DATE: 201907
